FAERS Safety Report 7636408-0 (Version None)
Quarter: 2011Q3

REPORT INFORMATION
  Report Type: 
  Country: None (occurrence: None)
  Receive Date: 20110719
  Receipt Date: 20110707
  Transmission Date: 20111222
  Serious: Yes (Other)
  Sender: FDA-Public Use
  Company Number: 2011SP032250

PATIENT
  Age: 23 Year
  Sex: Male

DRUGS (14)
  1. E-VIMIN [Concomitant]
  2. VENTOLIN DISKUS [Concomitant]
  3. DESLORATADINE [Concomitant]
  4. NASOMET [Concomitant]
  5. ACETYLCYSTEIN MYLAN [Concomitant]
  6. BETAPRED [Concomitant]
  7. ACETAMINOPHEN W/ CODEINE [Concomitant]
  8. XOLAIR [Suspect]
     Indication: BRONCHOPNEUMONIA
     Dosage: 150 MG, SC
     Route: 058
     Dates: start: 20101122, end: 20110224
  9. ADDEX SODIUM CHLORIDE [Concomitant]
  10. TREO COMP [Concomitant]
  11. NOXAFIL [Suspect]
     Indication: BRONCHOPNEUMONIA
     Dosage: 20 MG, QD, PO
     Route: 048
     Dates: start: 20100119, end: 20110224
  12. BISOLVON [Concomitant]
  13. CREON [Concomitant]
  14. SYMBICOET TURBUHALER [Concomitant]

REACTIONS (1)
  - RASH [None]
